FAERS Safety Report 15577667 (Version 3)
Quarter: 2019Q1

REPORT INFORMATION
  Report Type: Report from Study
  Country: US (occurrence: US)
  Receive Date: 20181102
  Receipt Date: 20190111
  Transmission Date: 20190417
  Serious: Yes (Death, Other)
  Sender: FDA-Public Use
  Company Number: US-009507513-1810USA011330

PATIENT
  Sex: Male

DRUGS (1)
  1. PROVENTIL [Suspect]
     Active Substance: ALBUTEROL
     Dosage: 90MCG, 2 PUFFS 4 TIMES DAILY AS NEEDED
     Route: 055

REACTIONS (2)
  - Hypoxia [Fatal]
  - Blood glucose decreased [Fatal]
